FAERS Safety Report 10341983 (Version 1)
Quarter: 2014Q3

REPORT INFORMATION
  Report Type: Spontaneous
  Country: IT (occurrence: IT)
  Receive Date: 20140725
  Receipt Date: 20140725
  Transmission Date: 20150326
  Serious: Yes (Other)
  Sender: FDA-Public Use
  Company Number: IT-ACCORD-024986

PATIENT
  Age: 45 Year
  Sex: Female
  Weight: 75 kg

DRUGS (3)
  1. BEVACIZUMAB [Concomitant]
     Active Substance: BEVACIZUMAB
     Indication: LUNG ADENOCARCINOMA
     Route: 042
     Dates: start: 20130620, end: 20131218
  2. CARBOPLATIN. [Concomitant]
     Active Substance: CARBOPLATIN
     Indication: LUNG ADENOCARCINOMA
     Route: 042
     Dates: start: 20130620, end: 20130924
  3. PACLITAXEL/PACLITAXEL LIPOSOME [Suspect]
     Active Substance: PACLITAXEL
     Indication: LUNG ADENOCARCINOMA
     Dosage: RECEIVED SECOND CYCLE
     Route: 042
     Dates: start: 20130620

REACTIONS (9)
  - Vomiting [Unknown]
  - Asthenia [Unknown]
  - Hypersensitivity [Recovered/Resolved]
  - Paraesthesia [Unknown]
  - Cardiac fibrillation [Unknown]
  - Atrial flutter [Unknown]
  - Productive cough [Unknown]
  - Rash pruritic [Recovered/Resolved]
  - Decreased appetite [Unknown]

NARRATIVE: CASE EVENT DATE: 20130620
